FAERS Safety Report 8554212-6 (Version None)
Quarter: 2012Q3

REPORT INFORMATION
  Report Type: 
  Country: None (occurrence: None)
  Receive Date: 20120731
  Receipt Date: 20120724
  Transmission Date: 20120928
  Serious: Yes (Other)
  Sender: FDA-Public Use
  Company Number: BR-ELI_LILLY_AND_COMPANY-BR201207007568

PATIENT
  Sex: Female
  Weight: 86 kg

DRUGS (10)
  1. HUMULIN N [Suspect]
     Dosage: UNK, UNKNOWN
     Route: 058
  2. HUMALOG [Suspect]
     Indication: DIABETES MELLITUS
     Dosage: UNK, UNKNOWN
     Route: 058
  3. LEVOTHYROXINE SODIUM [Concomitant]
     Indication: HYPOTHYROIDISM
     Dosage: 25 MG, QD
     Route: 048
  4. CALCIUM CARBONATE W/VITAMIN D      /00944201/ [Concomitant]
     Indication: OSTEOPOROSIS
     Dosage: UNK, BID
     Route: 048
  5. METFORMIN HYDROCHLORIDE [Concomitant]
     Indication: DIABETES MELLITUS
     Dosage: 850 MG, BID
     Route: 048
  6. VASOCOR                            /00574902/ [Concomitant]
     Indication: BLOOD CHOLESTEROL
     Dosage: 'UNK, UNKNOWN
     Route: 065
  7. HUMULIN N [Suspect]
     Indication: DIABETES MELLITUS
     Dosage: UNK, UNKNOWN
     Route: 058
     Dates: start: 19970101
  8. HUMULIN N [Suspect]
     Dosage: UNK, UNKNOWN
     Route: 058
  9. DIOVAN [Concomitant]
     Indication: DIABETES MELLITUS
     Dosage: 160 MG, EACH MORNING
     Route: 048
  10. PROTOS [Concomitant]
     Indication: OSTEOPOROSIS
     Dosage: 2 G, EACH EVENING
     Route: 048

REACTIONS (2)
  - ARTERIOSCLEROSIS [None]
  - DEMENTIA ALZHEIMER'S TYPE [None]
